FAERS Safety Report 11980633 (Version 3)
Quarter: 2016Q2

REPORT INFORMATION
  Report Type: Spontaneous
  Country: US (occurrence: US)
  Receive Date: 20160129
  Receipt Date: 20160512
  Transmission Date: 20160815
  Serious: Yes (Other)
  Sender: FDA-Public Use
  Company Number: US-CELGENEUS-USA-2016015976

PATIENT
  Sex: Female
  Weight: 53.53 kg

DRUGS (2)
  1. POMALYST [Suspect]
     Active Substance: POMALIDOMIDE
     Indication: MYELOFIBROSIS
     Route: 048
     Dates: start: 20151112
  2. POMALYST [Suspect]
     Active Substance: POMALIDOMIDE
     Route: 048
     Dates: start: 20160106

REACTIONS (3)
  - Burning sensation [Unknown]
  - Neuropathy peripheral [Unknown]
  - Contusion [Unknown]

NARRATIVE: CASE EVENT DATE: 2016
